FAERS Safety Report 4688238-X (Version None)
Quarter: 2005Q2

REPORT INFORMATION
  Report Type: 
  Country: None (occurrence: None)
  Receive Date: 20050609
  Receipt Date: 20050527
  Transmission Date: 20051028
  Serious: Yes (Other)
  Sender: FDA-Public Use
  Company Number: 2005066702

PATIENT
  Age: 63 Year
  Sex: Female
  Weight: 66.6788 kg

DRUGS (6)
  1. CELEBREX [Suspect]
     Indication: OSTEOARTHRITIS
     Dosage: ORAL
     Route: 048
     Dates: start: 20010101
  2. BEXTRA [Suspect]
     Indication: OSTEOARTHRITIS
     Dosage: 10 MG (10 MG, 1 IN 1 D), ORAL
     Route: 048
     Dates: start: 20020101, end: 20050426
  3. ASPIRIN [Concomitant]
  4. DARVOCET (DEXTROPROPOXYPHENE NAPSILATE , PARACETAMOL) [Concomitant]
  5. ULTRAM [Concomitant]
  6. LORTAB [Concomitant]

REACTIONS (5)
  - ABDOMINAL PAIN UPPER [None]
  - BLOOD PRESSURE INCREASED [None]
  - CONDITION AGGRAVATED [None]
  - DYSPEPSIA [None]
  - PAIN [None]
